FAERS Safety Report 20447402 (Version 2)
Quarter: 2022Q1

REPORT INFORMATION
  Report Type: Spontaneous
  Country: ES (occurrence: ES)
  Receive Date: 20220209
  Receipt Date: 20220223
  Transmission Date: 20220423
  Serious: Yes (Hospitalization, Other)
  Sender: FDA-Public Use
  Company Number: ES-CELLTRION INC.-2022ES001167

PATIENT

DRUGS (4)
  1. RITUXIMAB [Suspect]
     Active Substance: RITUXIMAB
     Indication: Waldenstrom^s macroglobulinaemia
     Dosage: PRIOR TO RB, THE PATIENT HAD RECEIVED 8 R CYCLES AS FIRST-LINE THERAPY
     Route: 065
  2. RITUXIMAB [Suspect]
     Active Substance: RITUXIMAB
     Dosage: 23 DAYS BEFORE ADMISSION, THE PATIENT RECEIVED THE SECOND CYCLE OF RB AS SECOND-LINE TREATMENT FOR W
  3. BENDAMUSTINE [Suspect]
     Active Substance: BENDAMUSTINE
     Indication: Waldenstrom^s macroglobulinaemia
     Dosage: 23 DAYS BEFORE ADMISSION, THE PATIENT RECEIVED THE SECOND CYCLE OF RB AS SECOND-LINE TREATMENT FOR W
     Route: 065
  4. BENDAMUSTINE [Suspect]
     Active Substance: BENDAMUSTINE
     Dosage: UNK, CYCLIC

REACTIONS (3)
  - Agranulocytosis [Unknown]
  - Neutropenia [Recovered/Resolved]
  - Off label use [Unknown]
